FAERS Safety Report 15697112 (Version 10)
Quarter: 2020Q2

REPORT INFORMATION
  Report Type: Spontaneous
  Country: US (occurrence: US)
  Receive Date: 20181206
  Receipt Date: 20200403
  Transmission Date: 20200713
  Serious: Yes (Other)
  Sender: FDA-Public Use
  Company Number: US-PFIZER INC-2018497324

PATIENT
  Age: 66 Year
  Sex: Female
  Weight: 99 kg

DRUGS (5)
  1. PRISTIQ EXTENDED-RELEASE [Suspect]
     Active Substance: DESVENLAFAXINE SUCCINATE
     Dosage: 100 MG, DAILY
     Route: 048
     Dates: end: 201909
  2. PRISTIQ EXTENDED-RELEASE [Suspect]
     Active Substance: DESVENLAFAXINE SUCCINATE
     Indication: DEPRESSION
     Dosage: 50 MG, UNK
     Route: 048
     Dates: start: 2010
  3. PRISTIQ EXTENDED-RELEASE [Suspect]
     Active Substance: DESVENLAFAXINE SUCCINATE
     Dosage: 100 MG, 1X/DAY
     Route: 048
  4. PRISTIQ EXTENDED-RELEASE [Suspect]
     Active Substance: DESVENLAFAXINE SUCCINATE
     Dosage: 100 MG, DAILY
     Route: 048
     Dates: start: 2015
  5. AMLODIPINE [Concomitant]
     Active Substance: AMLODIPINE BESYLATE
     Dosage: UNK

REACTIONS (15)
  - Cerebral disorder [Unknown]
  - Withdrawal syndrome [Unknown]
  - Gastroenteritis viral [Unknown]
  - Panic attack [Unknown]
  - Intentional product use issue [Unknown]
  - Impatience [Unknown]
  - Product dispensing error [Unknown]
  - Hallucination, visual [Unknown]
  - Wrong technique in product usage process [Unknown]
  - Nasopharyngitis [Unknown]
  - Mental disorder [Unknown]
  - Suicidal ideation [Recovered/Resolved]
  - Hyperhidrosis [Unknown]
  - Anger [Unknown]
  - Crying [Unknown]

NARRATIVE: CASE EVENT DATE: 201909
